FAERS Safety Report 21053454 (Version 5)
Quarter: 2022Q3

REPORT INFORMATION
  Report Type: Spontaneous
  Country: AU (occurrence: AU)
  Receive Date: 20220707
  Receipt Date: 20220908
  Transmission Date: 20221026
  Serious: Yes (Death, Other)
  Sender: FDA-Public Use
  Company Number: AU-BRISTOL-MYERS SQUIBB COMPANY-2022-032746

PATIENT
  Age: 87 Year
  Sex: Female
  Weight: 78 kg

DRUGS (35)
  1. AZACITIDINE [Suspect]
     Active Substance: AZACITIDINE
     Indication: Acute myeloid leukaemia
     Route: 042
     Dates: start: 20211021
  2. AZACITIDINE [Suspect]
     Active Substance: AZACITIDINE
     Route: 042
     Dates: start: 20220317, end: 20220317
  3. BGB-11417 [Suspect]
     Active Substance: BGB-11417
     Indication: Acute myeloid leukaemia
     Dosage: 5 MILLIGRAM, QD
     Route: 048
     Dates: start: 20211022
  4. BGB-11417 [Suspect]
     Active Substance: BGB-11417
     Dosage: 40 MILLIGRAM, QD
     Route: 048
     Dates: start: 20220309, end: 20220318
  5. METOPROLOL [Concomitant]
     Active Substance: METOPROLOL
     Indication: Hypertension
     Dosage: UNK
     Route: 048
     Dates: start: 20200710
  6. METOPROLOL [Concomitant]
     Active Substance: METOPROLOL
     Route: 048
     Dates: start: 20210710
  7. EZETIMIBE [Concomitant]
     Active Substance: EZETIMIBE
     Indication: Hypercholesterolaemia
     Dosage: UNK
     Route: 048
     Dates: start: 1985
  8. VITAMIN D3 [Concomitant]
     Active Substance: CHOLECALCIFEROL
     Indication: Osteoporosis
     Dosage: UNK
     Route: 048
     Dates: start: 2013
  9. FESS [Concomitant]
     Indication: Sinus congestion
     Dosage: UNK
     Route: 045
     Dates: start: 20210901
  10. GENTAMICIN [Concomitant]
     Active Substance: GENTAMICIN
     Indication: Bacteraemia
     Dosage: UNK
     Route: 042
     Dates: start: 20220402, end: 20220402
  11. ALLOPURINOL [Concomitant]
     Active Substance: ALLOPURINOL
     Indication: Prophylaxis
     Dosage: UNK
     Route: 048
     Dates: start: 20211014, end: 20220421
  12. LERCANIDIPINE [Concomitant]
     Active Substance: LERCANIDIPINE
     Indication: Hypertension
     Dosage: UNK
     Route: 048
     Dates: start: 20220402, end: 20220429
  13. PROCHLORPERAZINE [Concomitant]
     Active Substance: PROCHLORPERAZINE
     Indication: Nausea
     Dosage: UNK
     Route: 030
     Dates: start: 20220402, end: 20220402
  14. MAGNESIUM [Concomitant]
     Active Substance: MAGNESIUM
     Indication: Muscle spasms
     Dosage: UNK
     Route: 048
     Dates: start: 20211116
  15. OXYCODONE [Concomitant]
     Active Substance: OXYCODONE
     Indication: Pseudomonal bacteraemia
     Dosage: 1 DAY
     Route: 048
     Dates: start: 20220402, end: 20220402
  16. CANDESARTAN CILEXETIL [Concomitant]
     Active Substance: CANDESARTAN CILEXETIL
     Indication: Hypertension
     Dosage: UNK
     Route: 048
     Dates: start: 2008, end: 20220429
  17. PROCHLORPERAZINE [Concomitant]
     Active Substance: PROCHLORPERAZINE
     Indication: Vertigo
     Dosage: UNK
     Route: 048
     Dates: start: 2019
  18. ROSUVASTATIN [Concomitant]
     Active Substance: ROSUVASTATIN
     Indication: Hypercholesterolaemia
     Dosage: UNK
     Route: 048
     Dates: start: 1985
  19. ISOSORBIDE MONONITRATE [Concomitant]
     Active Substance: ISOSORBIDE MONONITRATE
     Indication: Myocardial ischaemia
     Dosage: UNK
     Route: 048
     Dates: start: 2008
  20. CALCIUM CARBONATE [Concomitant]
     Active Substance: CALCIUM CARBONATE
     Indication: Osteoporosis
     Dosage: UNK
     Route: 048
     Dates: start: 2013
  21. CALCIUM CARBONATE\SODIUM ALGINATE\SODIUM BICARBONATE [Concomitant]
     Active Substance: CALCIUM CARBONATE\SODIUM ALGINATE\SODIUM BICARBONATE
     Indication: Gastrooesophageal reflux disease
     Dosage: UNK
     Route: 048
     Dates: start: 2019
  22. PIPERACILLIN SODIUM\TAZOBACTAM SODIUM [Concomitant]
     Active Substance: PIPERACILLIN SODIUM\TAZOBACTAM SODIUM
     Indication: Bacteraemia
     Dosage: UNK
     Route: 065
     Dates: start: 20220401, end: 20220414
  23. VALACYCLOVIR HYDROCHLORIDE [Concomitant]
     Active Substance: VALACYCLOVIR HYDROCHLORIDE
     Indication: Antiviral prophylaxis
     Dosage: UNK
     Route: 048
     Dates: start: 20211021
  24. FILGRASTIM [Concomitant]
     Active Substance: FILGRASTIM
     Indication: Neutropenia
     Dosage: UNK
     Route: 058
     Dates: start: 20220402, end: 20220418
  25. NYSTATIN [Concomitant]
     Active Substance: NYSTATIN
     Indication: Mouth ulceration
     Dosage: UNK
     Route: 061
     Dates: start: 20220116
  26. KEFLEX [Concomitant]
     Active Substance: CEPHALEXIN
     Indication: Folliculitis
     Dosage: UNK
     Route: 048
     Dates: start: 20211116
  27. KEFLEX [Concomitant]
     Active Substance: CEPHALEXIN
     Indication: Skin irritation
     Dosage: UNK
     Route: 048
     Dates: start: 20220104
  28. CIPROFLOXACIN USP [CIPROFLOXACIN HYDROCHLORIDE] [Concomitant]
     Indication: Otitis externa
     Route: 061
     Dates: start: 20220405, end: 20220412
  29. PARACETAMOL O [Concomitant]
     Indication: Bacteraemia
     Route: 048
     Dates: start: 20220401, end: 20220421
  30. PARACETAMOL O [Concomitant]
     Indication: Otitis externa
  31. PARACETAMOL O [Concomitant]
     Indication: Mastoiditis
  32. PARACETAMOL O [Concomitant]
     Indication: Otitis media
  33. ONDANSETRON HYDROCHLORIDE [Concomitant]
     Active Substance: ONDANSETRON HYDROCHLORIDE
     Indication: Otitis externa
     Route: 048
     Dates: start: 20220406, end: 20220422
  34. ONDANSETRON HYDROCHLORIDE [Concomitant]
     Active Substance: ONDANSETRON HYDROCHLORIDE
     Indication: Otitis media
  35. SODIUM PHOSPHATE DIBASIC;SODIUM PHOSPHATE DIBASIC DODECAHYDRATE [Concomitant]
     Indication: Otitis externa
     Route: 048
     Dates: start: 20220405, end: 20220412

REACTIONS (3)
  - Otitis externa [Recovered/Resolved]
  - Otitis media [Recovered/Resolved]
  - Malignant neoplasm progression [Fatal]

NARRATIVE: CASE EVENT DATE: 20220404
